FAERS Safety Report 4985098-4 (Version None)
Quarter: 2006Q1

REPORT INFORMATION
  Report Type: 
  Country: None (occurrence: None)
  Receive Date: 20060303
  Receipt Date: 20020315
  Transmission Date: 20060701
  Serious: Yes (Other)
  Sender: FDA-Public Use
  Company Number: PHEH2002US02738

PATIENT
  Age: 60 Year
  Sex: Male

DRUGS (8)
  1. NEORAL [Suspect]
     Indication: HEART TRANSPLANT
     Dosage: 75 MG, BID, ORAL
     Route: 048
     Dates: start: 19970101
  2. IMURAN [Concomitant]
  3. RANITIDINE [Concomitant]
  4. ALLEGRA [Concomitant]
  5. SYNTHROID [Concomitant]
  6. ALLOPURINOL [Concomitant]
  7. AMBIEN [Concomitant]
  8. PRAVACHOL [Concomitant]

REACTIONS (1)
  - SKIN CANCER [None]
